FAERS Safety Report 20846116 (Version 1)
Quarter: 2022Q2

REPORT INFORMATION
  Report Type: Spontaneous
  Country: US (occurrence: US)
  Receive Date: 20220518
  Receipt Date: 20220518
  Transmission Date: 20220721
  Serious: No
  Sender: FDA-Public Use
  Company Number: US-PFIZER INC-202200223573

PATIENT
  Age: 45 Year
  Sex: Female

DRUGS (3)
  1. HYDROXYZINE PAMOATE [Suspect]
     Active Substance: HYDROXYZINE PAMOATE
     Indication: Insomnia
     Dosage: UNK
     Dates: start: 202201
  2. FLUVOXAMINE MALEATE [Suspect]
     Active Substance: FLUVOXAMINE MALEATE
     Indication: Obsessive-compulsive disorder
     Dosage: 50 MG, 1X/DAY (AFTER 7 PM)
     Route: 048
     Dates: start: 202201
  3. FLUVOXAMINE MALEATE [Suspect]
     Active Substance: FLUVOXAMINE MALEATE
     Dosage: 50 MG, 1X/DAY (AT 7 PML)
     Route: 048
     Dates: start: 202201, end: 202201

REACTIONS (3)
  - Somnolence [Unknown]
  - Off label use [Unknown]
  - Drug ineffective for unapproved indication [Unknown]

NARRATIVE: CASE EVENT DATE: 20220101
